FAERS Safety Report 4745726-5 (Version None)
Quarter: 2005Q3

REPORT INFORMATION
  Report Type: 
  Country: None (occurrence: None)
  Receive Date: 20050811
  Receipt Date: 20050801
  Transmission Date: 20060218
  Serious: Yes (Death)
  Sender: FDA-Public Use
  Company Number: 2005105597

PATIENT
  Age: 90 Year
  Sex: Female

DRUGS (1)
  1. BEXTRA [Suspect]
     Indication: ILL-DEFINED DISORDER
     Dosage: (40 MG), ORAL
     Route: 048
     Dates: start: 20040101, end: 20040101

REACTIONS (1)
  - RESPIRATORY FAILURE [None]
